FAERS Safety Report 7904879-8 (Version None)
Quarter: 2011Q4

REPORT INFORMATION
  Report Type: 
  Country: None (occurrence: None)
  Receive Date: 20111109
  Receipt Date: 20111101
  Transmission Date: 20120403
  Serious: Yes (Other)
  Sender: FDA-Public Use
  Company Number: US-NAPPMUNDI-USA-2011-0076993

PATIENT
  Sex: Female
  Weight: 63.492 kg

DRUGS (2)
  1. BUTRANS [Suspect]
     Dosage: 10 MCG, Q1H
     Route: 062
     Dates: start: 20111004, end: 20111029
  2. BUTRANS [Suspect]
     Indication: PAIN
     Dosage: 5 MCG, Q1H
     Route: 062
     Dates: start: 20110923, end: 20111004

REACTIONS (14)
  - DRUG EFFECT INCREASED [None]
  - FAECAL VOLUME DECREASED [None]
  - WEIGHT DECREASED [None]
  - GASTROINTESTINAL HYPOMOTILITY [None]
  - ERUCTATION [None]
  - DRUG EFFECT DECREASED [None]
  - DRUG HYPERSENSITIVITY [None]
  - PAIN [None]
  - INTESTINAL OBSTRUCTION [None]
  - ILEUS [None]
  - ABDOMINAL PAIN UPPER [None]
  - ABDOMINAL DISTENSION [None]
  - VOMITING [None]
  - ABDOMINAL PAIN [None]
